FAERS Safety Report 10244158 (Version 1)
Quarter: 2014Q2

REPORT INFORMATION
  Report Type: Spontaneous
  Country: US (occurrence: None)
  Receive Date: 20140616
  Receipt Date: 20140616
  Transmission Date: 20141212
  Serious: Yes (Disabling)
  Sender: FDA-Public Use
  Company Number: None

PATIENT
  Age: 44 Year
  Sex: Female
  Weight: 50.8 kg

DRUGS (1)
  1. KENALOG [Suspect]
     Indication: INFLAMMATION
     Dosage: 3 IN 3 MONTHS

REACTIONS (4)
  - Injection site atrophy [None]
  - Injection site pain [None]
  - Condition aggravated [None]
  - Pain [None]
